FAERS Safety Report 8362023-X (Version None)
Quarter: 2012Q2

REPORT INFORMATION
  Report Type: 
  Country: None (occurrence: None)
  Receive Date: 20120515
  Receipt Date: 20120503
  Transmission Date: 20120825
  Serious: Yes (Hospitalization, Disabling, Other)
  Sender: FDA-Public Use
  Company Number: GB-TEVA-336409ISR

PATIENT
  Age: 42 Year
  Sex: Male
  Weight: 90 kg

DRUGS (1)
  1. RISPERIDONE [Suspect]
     Indication: PARANOIA
     Route: 048
     Dates: start: 20030901, end: 20120408

REACTIONS (5)
  - SYNCOPE [None]
  - HYPERGLYCAEMIC HYPEROSMOLAR NONKETOTIC SYNDROME [None]
  - DIABETES MELLITUS [None]
  - DIABETES MELLITUS INADEQUATE CONTROL [None]
  - ACIDOSIS [None]
